FAERS Safety Report 4774856-7 (Version None)
Quarter: 2005Q3

REPORT INFORMATION
  Report Type: 
  Country: None (occurrence: None)
  Receive Date: 20050919
  Receipt Date: 20050907
  Transmission Date: 20060218
  Serious: Yes (Disabling)
  Sender: FDA-Public Use
  Company Number: 2005125876

PATIENT
  Age: 36 Year
  Sex: Female

DRUGS (9)
  1. CELEBREX [Suspect]
     Indication: POLYARTHRITIS
     Dosage: 400 MG (200 MG, 2 IN 1 D)
     Dates: start: 20000101
  2. ZYRTEC [Suspect]
     Indication: HYPERSENSITIVITY
     Dates: start: 20000101
  3. XANAX [Concomitant]
  4. LEXAPRO [Concomitant]
  5. WELLBUTRIN [Concomitant]
  6. TRAZODONE [Concomitant]
  7. RANITIDINE HCL [Concomitant]
  8. DRUG, UNSPECIFIED [Concomitant]
  9. DARVOCET [Concomitant]

REACTIONS (5)
  - CONDITION AGGRAVATED [None]
  - ECONOMIC PROBLEM [None]
  - MENTAL DISORDER [None]
  - OEDEMA PERIPHERAL [None]
  - PARTNER STRESS [None]
